FAERS Safety Report 8013289-7 (Version None)
Quarter: 2011Q4

REPORT INFORMATION
  Report Type: 
  Country: None (occurrence: None)
  Receive Date: 20111229
  Receipt Date: 20111216
  Transmission Date: 20120403
  Serious: Yes (Other)
  Sender: FDA-Public Use
  Company Number: PHHY2011CA95437

PATIENT
  Sex: Male

DRUGS (10)
  1. FENOFIBRATE [Concomitant]
     Dosage: 160 MG/DAY
  2. ATORVASTATIN [Concomitant]
     Dosage: 20 MG, PER DAY
  3. ASPIRIN [Concomitant]
     Dosage: 81 MG/DAY
  4. BENZODIAZEPINES [Concomitant]
     Dosage: 2 MG, QHS
  5. CLOZARIL [Suspect]
     Dates: start: 20070420
  6. MODULITE [Concomitant]
     Dosage: 25 MG/DAY 2WRS
  7. METFORMIN HCL [Concomitant]
     Dosage: 500 MG, BID
     Route: 048
  8. QUETIAPINE [Concomitant]
     Dosage: 150 MG, QHS
     Route: 048
  9. METOPROLOL [Concomitant]
     Dosage: 25 MG, QAM
     Route: 048
  10. FOLATE SODIUM [Concomitant]
     Dosage: 1 MG/DAY

REACTIONS (1)
  - VARICELLA [None]
